FAERS Safety Report 16052592 (Version 1)
Quarter: 2019Q1

REPORT INFORMATION
  Report Type: Report from Study
  Country: IE (occurrence: IE)
  Receive Date: 20190308
  Receipt Date: 20190308
  Transmission Date: 20190418
  Serious: Yes (Other)
  Sender: FDA-Public Use
  Company Number: IE-JNJFOC-20190303463

PATIENT
  Age: 74 Year
  Sex: Female

DRUGS (16)
  1. ARANESP [Suspect]
     Active Substance: DARBEPOETIN ALFA
     Indication: PRODUCT USED FOR UNKNOWN INDICATION
     Route: 058
  2. FOLIC ACID. [Concomitant]
     Active Substance: FOLIC ACID
     Route: 050
  3. METOPROLOL. [Concomitant]
     Active Substance: METOPROLOL
     Route: 050
  4. BUMETANIDE. [Concomitant]
     Active Substance: BUMETANIDE
     Route: 050
  5. ZIMOVANE [Concomitant]
     Active Substance: ZOPICLONE
     Route: 050
  6. MIMPARA [Concomitant]
     Active Substance: CINACALCET HYDROCHLORIDE
     Route: 050
  7. RANITIC [Concomitant]
     Active Substance: RANITIDINE HYDROCHLORIDE
     Route: 050
  8. ROSUVA [Concomitant]
     Active Substance: ROSUVASTATIN CALCIUM
     Route: 050
  9. SIMPONI [Suspect]
     Active Substance: GOLIMUMAB
     Indication: PRODUCT USED FOR UNKNOWN INDICATION
     Route: 058
  10. PARACETAMOL [Concomitant]
     Active Substance: ACETAMINOPHEN
     Dosage: PRN (AS REQUIRED)
     Route: 050
  11. LERCANIDIPINE [Concomitant]
     Active Substance: LERCANIDIPINE
     Route: 050
  12. LEVOTHYROXINE. [Concomitant]
     Active Substance: LEVOTHYROXINE
     Dosage: PRN (AS REQUIRED)
     Route: 050
  13. DOXAZOSIN [Concomitant]
     Active Substance: DOXAZOSIN\DOXAZOSIN MESYLATE
     Route: 050
  14. GALFER [Concomitant]
     Active Substance: IRON
     Route: 050
  15. METHOTREXATE. [Concomitant]
     Active Substance: METHOTREXATE
     Route: 050
  16. ASPRIN [Concomitant]
     Active Substance: ASPIRIN
     Route: 050

REACTIONS (5)
  - Lower respiratory tract infection [Unknown]
  - Hypotension [Unknown]
  - Catheter site bruise [Not Recovered/Not Resolved]
  - Chest pain [Unknown]
  - Catheter site swelling [Not Recovered/Not Resolved]

NARRATIVE: CASE EVENT DATE: 20190220
